FAERS Safety Report 11964203 (Version 1)
Quarter: 2016Q1

REPORT INFORMATION
  Report Type: Spontaneous
  Country: US (occurrence: None)
  Receive Date: 20160122
  Receipt Date: 20160122
  Transmission Date: 20160526
  Serious: Yes (Disabling)
  Sender: FDA-Public Use
  Company Number: None

PATIENT
  Age: 61 Year
  Sex: Female

DRUGS (2)
  1. ELESTAT [Suspect]
     Active Substance: EPINASTINE HYDROCHLORIDE
     Indication: SJOGREN^S SYNDROME
     Dosage: 6-8 MONTHS
     Route: 047
  2. ELESTAT [Suspect]
     Active Substance: EPINASTINE HYDROCHLORIDE
     Indication: MULTIPLE ALLERGIES
     Dosage: 6-8 MONTHS
     Route: 047

REACTIONS (1)
  - Tic [None]

NARRATIVE: CASE EVENT DATE: 20151201
